FAERS Safety Report 9511754 (Version 1)
Quarter: 2013Q3

REPORT INFORMATION
  Report Type: Spontaneous
  Country: US (occurrence: None)
  Receive Date: 20130909
  Receipt Date: 20130909
  Transmission Date: 20140515
  Serious: Yes (Disabling, Other)
  Sender: FDA-Public Use
  Company Number: None

PATIENT
  Age: 59 Year
  Sex: Female

DRUGS (1)
  1. EUCERIN CREAM [Suspect]
     Indication: DRY SKIN

REACTIONS (3)
  - Urticaria [None]
  - Swelling face [None]
  - Visual impairment [None]
